FAERS Safety Report 12524813 (Version 1)
Quarter: 2016Q3

REPORT INFORMATION
  Report Type: Spontaneous
  Country: US (occurrence: US)
  Receive Date: 20160704
  Receipt Date: 20160704
  Transmission Date: 20161109
  Serious: Yes (Hospitalization, Other)
  Sender: FDA-Public Use
  Company Number: US-PFIZER INC-2016321520

PATIENT
  Age: 20 Year
  Sex: Male

DRUGS (6)
  1. NEURONTIN [Suspect]
     Active Substance: GABAPENTIN
     Dosage: UNK
  2. ONFI [Suspect]
     Active Substance: CLOBAZAM
     Indication: EPILEPSY
     Dosage: 20 MG IN AM; AND 25 MG IN THE PM
     Dates: start: 20120223
  3. ONFI [Suspect]
     Active Substance: CLOBAZAM
     Dosage: 25 MG IN AM; 20 MG IN THE AFTERNOON AND 25 MG IN THE PM)
  4. ONFI [Suspect]
     Active Substance: CLOBAZAM
     Dosage: 25 MG, 3X/DAY
  5. APTIOM [Concomitant]
     Active Substance: ESLICARBAZEPINE ACETATE
     Dosage: UNK
  6. BANZEL [Concomitant]
     Active Substance: RUFINAMIDE
     Dosage: UNK

REACTIONS (9)
  - Lethargy [Unknown]
  - Vomiting [Unknown]
  - Seizure [Recovering/Resolving]
  - Sedation [Unknown]
  - Tremor [Unknown]
  - Hypoxia [Unknown]
  - Small intestinal obstruction [Unknown]
  - Septic shock [Unknown]
  - Salivary hypersecretion [Unknown]

NARRATIVE: CASE EVENT DATE: 2015
